FAERS Safety Report 24190933 (Version 1)
Quarter: 2024Q3

REPORT INFORMATION
  Report Type: Report from Study
  Country: IT (occurrence: IT)
  Receive Date: 20240808
  Receipt Date: 20240808
  Transmission Date: 20241016
  Serious: Yes (Life-Threatening)
  Sender: TEVA
  Company Number: IT-TEVA-VS-3228718

PATIENT
  Age: 49 Year
  Sex: Female
  Weight: 59 kg

DRUGS (6)
  1. OXALIPLATIN [Suspect]
     Active Substance: OXALIPLATIN
     Indication: Chemotherapy
     Dosage: OTHER Q14
     Route: 042
     Dates: start: 20240628
  2. FLUOROURACIL [Suspect]
     Active Substance: FLUOROURACIL
     Indication: Chemotherapy
     Dosage: OTHER (Q14
     Route: 040
     Dates: start: 20240628
  3. FLUOROURACIL [Suspect]
     Active Substance: FLUOROURACIL
     Indication: Chemotherapy
     Dosage: OTHER (Q14
     Route: 042
     Dates: start: 20240630
  4. ZOLBETUXIMAB [Suspect]
     Active Substance: ZOLBETUXIMAB
     Indication: Monoclonal antibody unconjugated therapy
     Dosage: OTHER (Q14)
     Route: 042
     Dates: start: 20240628
  5. NIVOLUMAB [Suspect]
     Active Substance: NIVOLUMAB
     Indication: Monoclonal antibody unconjugated therapy
     Dosage: OTHER (Q14)
     Route: 042
     Dates: start: 20240628
  6. LEVOLEUCOVORIN [Suspect]
     Active Substance: LEVOLEUCOVORIN
     Indication: Product used for unknown indication
     Dosage: OTHER (Q14
     Route: 042

REACTIONS (1)
  - Febrile neutropenia [Not Recovered/Not Resolved]

NARRATIVE: CASE EVENT DATE: 20240701
